FAERS Safety Report 10085478 (Version 1)
Quarter: 2014Q2

REPORT INFORMATION
  Report Type: Spontaneous
  Country: US (occurrence: US)
  Receive Date: 20140418
  Receipt Date: 20140418
  Transmission Date: 20141212
  Serious: No
  Sender: FDA-Public Use
  Company Number: 2009BI014322

PATIENT
  Age: 64 Year
  Sex: Male

DRUGS (26)
  1. TYSABRI [Suspect]
     Indication: MULTIPLE SCLEROSIS
     Route: 042
     Dates: start: 20050112, end: 20050112
  2. TYSABRI [Suspect]
     Indication: MULTIPLE SCLEROSIS
     Route: 042
     Dates: start: 20060907, end: 20061229
  3. TYSABRI [Suspect]
     Indication: MULTIPLE SCLEROSIS
     Route: 042
     Dates: start: 20090316, end: 20090413
  4. FOSAMAX [Concomitant]
  5. TERAZOSIN [Concomitant]
     Indication: BLOOD PRESSURE
  6. TERAZOSIN [Concomitant]
     Indication: MUSCLE RELAXANT THERAPY
  7. BACLOFEN [Concomitant]
     Indication: MUSCLE SPASMS
  8. MODAFINIL [Concomitant]
     Indication: ASTHENIA
  9. PRILOSEC [Concomitant]
     Indication: GASTROOESOPHAGEAL REFLUX DISEASE
  10. NITROFURANTOIN MACROCRYSTALLINE [Concomitant]
     Indication: PROPHYLAXIS URINARY TRACT INFECTION
  11. CARBANAZEPINE [Concomitant]
     Indication: GENERAL SYMPTOM
  12. 4 AMINO PYRIDINE [Concomitant]
     Indication: ASTHENIA
  13. 4 AMINO PYRIDINE [Concomitant]
     Indication: FEELING HOT
  14. LORTAB [Concomitant]
     Indication: ARACHNOIDITIS
  15. TEMAZEPAM [Concomitant]
  16. ASPIRIN [Concomitant]
  17. ENEMEEZ [Concomitant]
     Indication: GASTROINTESTINAL DISORDER
  18. METAMUCIL [Concomitant]
     Indication: GASTROINTESTINAL MOTILITY DISORDER
  19. BENADRYL [Concomitant]
     Indication: INSOMNIA
  20. CRANBERRY FRUIT CONCENTRATE [Concomitant]
     Indication: URINARY TRACT DISORDER
  21. VITAMIN D [Concomitant]
  22. CALCIUM SUPPLEMENT [Concomitant]
  23. B12 SUPPLEMENT [Concomitant]
  24. HYDROCORTIZONE [Concomitant]
     Indication: ECZEMA
  25. TRIAMCINOLONE ACETOMIDE CREAM 0.1% [Concomitant]
     Indication: TRANSIENT ACANTHOLYTIC DERMATOSIS
  26. SILVER SULFADIAZINE CREAM [Concomitant]

REACTIONS (6)
  - Hypersensitivity [Unknown]
  - Blood pressure decreased [Recovered/Resolved]
  - Groin pain [Recovered/Resolved]
  - Rash [Not Recovered/Not Resolved]
  - Arthralgia [Recovered/Resolved]
  - Cystitis [Not Recovered/Not Resolved]
